FAERS Safety Report 8584638-6 (Version None)
Quarter: 2012Q3

REPORT INFORMATION
  Report Type: 
  Country: None (occurrence: None)
  Receive Date: 20120810
  Receipt Date: 20120728
  Transmission Date: 20120928
  Serious: Yes (Other)
  Sender: FDA-Public Use
  Company Number: PT-PAR PHARMACEUTICAL, INC-2012SCPR004540

PATIENT

DRUGS (3)
  1. VENLAFAXINE HYDROCHOLRIDE [Suspect]
     Indication: DEPRESSION
     Dosage: 150 MG, / DAY
     Route: 065
  2. VENLAFAXINE HYDROCHOLRIDE [Suspect]
     Dosage: 225 MG, / DAY
     Route: 065
  3. VENLAFAXINE HYDROCHOLRIDE [Suspect]
     Dosage: 150 MG, / DAY
     Route: 065

REACTIONS (3)
  - URINARY INCONTINENCE [None]
  - POLLAKIURIA [None]
  - MICTURITION URGENCY [None]
